FAERS Safety Report 6031887-7 (Version None)
Quarter: 2008Q4

REPORT INFORMATION
  Report Type: 
  Country: None (occurrence: None)
  Receive Date: 20081224
  Receipt Date: 20080903
  Transmission Date: 20090506
  Serious: No
  Sender: FDA-Public Use
  Company Number: 2008PV036617

PATIENT
  Age: 36 Year

DRUGS (4)
  1. SYMLIN [Suspect]
     Indication: TYPE 1 DIABETES MELLITUS
     Dosage: 60 MCG; TID; SC, 60 MCG; TID; SC
     Route: 058
     Dates: start: 20080101, end: 20080101
  2. SYMLIN [Suspect]
     Indication: TYPE 1 DIABETES MELLITUS
     Dosage: 60 MCG; TID; SC, 60 MCG; TID; SC
     Route: 058
     Dates: start: 20080801
  3. SYMLIN [Suspect]
     Indication: TYPE 1 DIABETES MELLITUS
     Dosage: 60 MCG; TID; SC
     Route: 058
     Dates: start: 20080401, end: 20080801
  4. HUMALOG [Concomitant]

REACTIONS (1)
  - BLOOD GLUCOSE INCREASED [None]
